FAERS Safety Report 5685167-X (Version None)
Quarter: 2008Q1

REPORT INFORMATION
  Report Type: 
  Country: None (occurrence: None)
  Receive Date: 20080328
  Receipt Date: 20080318
  Transmission Date: 20080703
  Serious: Yes (Death, Other)
  Sender: FDA-Public Use
  Company Number: PE-PFIZER INC-2008016747

PATIENT
  Sex: Female

DRUGS (4)
  1. LIPITOR [Suspect]
     Dates: start: 20060801, end: 20080212
  2. ZOLOFT [Suspect]
     Dates: start: 20060801, end: 20080212
  3. ALDACTONE [Suspect]
     Dates: start: 20060801, end: 20080212
  4. XALATAN [Suspect]
     Dates: start: 20060801, end: 20080212

REACTIONS (2)
  - MYOCARDIAL INFARCTION [None]
  - VASCULAR INSUFFICIENCY [None]
